FAERS Safety Report 17983100 (Version 1)
Quarter: 2020Q3

REPORT INFORMATION
  Report Type: Spontaneous
  Country: US (occurrence: US)
  Receive Date: 20200703
  Receipt Date: 20200703
  Transmission Date: 20201103
  Serious: No
  Sender: FDA-Public Use
  Company Number: None

PATIENT
  Age: 82 Year
  Sex: Male
  Weight: 106.5 kg

DRUGS (15)
  1. ATORVASTATIN 20 [Concomitant]
  2. VALSARTAN ?HCTZ 320?12.5 [Concomitant]
  3. LATANOPROST 0.005% [Concomitant]
     Active Substance: LATANOPROST
  4. ACIDOPHILUS [Concomitant]
     Active Substance: LACTOBACILLUS ACIDOPHILUS
  5. FAMOTIDINE 40 [Concomitant]
  6. CLINDAMYCIN 300MG [Concomitant]
     Active Substance: CLINDAMYCIN PHOSPHATE
  7. EVEROLIMUS. [Suspect]
     Active Substance: EVEROLIMUS
     Indication: PANCREATIC CARCINOMA
     Route: 048
     Dates: start: 20200522
  8. TRAMADOL 50MG [Concomitant]
     Active Substance: TRAMADOL
  9. VITAMIN C [Concomitant]
     Active Substance: ASCORBIC ACID
  10. CARVEDILOL 25MG [Concomitant]
     Active Substance: CARVEDILOL
  11. PERCOCET [Concomitant]
     Active Substance: ACETAMINOPHEN\OXYCODONE HYDROCHLORIDE
  12. TYLENOL 325 [Concomitant]
  13. VALIUM 5 [Concomitant]
  14. ASPIRIN 81 MG [Concomitant]
     Active Substance: ASPIRIN
  15. CENTRUM SILVER [Concomitant]
     Active Substance: MINERALS\VITAMINS

REACTIONS (1)
  - Tenderness [None]
